FAERS Safety Report 7228261-4 (Version None)
Quarter: 2011Q1

REPORT INFORMATION
  Report Type: 
  Country: None (occurrence: None)
  Receive Date: 20110114
  Receipt Date: 20110110
  Transmission Date: 20110831
  Serious: Yes (Other)
  Sender: FDA-Public Use
  Company Number: DE-PFIZER INC-2011005745

PATIENT
  Sex: Female

DRUGS (2)
  1. LYRICA [Suspect]
     Dosage: UNK
     Dates: start: 20101201, end: 20101201
  2. LYRICA [Suspect]
     Dosage: 200MG DAILY
     Dates: start: 20101201

REACTIONS (1)
  - ELECTROCARDIOGRAM QT PROLONGED [None]
